FAERS Safety Report 8974713 (Version 1)
Quarter: 2012Q4

REPORT INFORMATION
  Report Type: Spontaneous
  Country: US (occurrence: None)
  Receive Date: 20121212
  Receipt Date: 20121212
  Transmission Date: 20130627
  Serious: Yes (Death)
  Sender: FDA-Public Use
  Company Number: 2012AP004235

PATIENT
  Age: 2 Year
  Sex: Male

DRUGS (4)
  1. LEVETIRACETAM EXTENDED-RELEASE TABLETS [Suspect]
     Indication: DRUG USE FOR UNKNOWN INDICATION
  2. CARBAMAZEPINE [Concomitant]
  3. DIAZEPAM [Concomitant]
  4. NORDIAZEPAM [Concomitant]

REACTIONS (3)
  - Dehydration [None]
  - Constipation [None]
  - Drug level below therapeutic [None]
